FAERS Safety Report 5032804-9 (Version None)
Quarter: 2006Q2

REPORT INFORMATION
  Report Type: 
  Country: None (occurrence: None)
  Receive Date: 20060620
  Receipt Date: 20060612
  Transmission Date: 20061013
  Serious: Yes (Other)
  Sender: FDA-Public Use
  Company Number: 230656K06USA

PATIENT
  Age: 42 Year
  Sex: Female
  Weight: 76.2 kg

DRUGS (4)
  1. REBIF [Suspect]
     Indication: MULTIPLE SCLEROSIS
     Dosage: 44 MCG, 3 IN 1 WEEKS, SUBCUTANEOUS
     Route: 058
     Dates: start: 20050501, end: 20060215
  2. NOVANTRONE [Suspect]
     Indication: MULTIPLE SCLEROSIS
     Dosage: 25 MG, ONCE
     Dates: start: 20051101, end: 20051101
  3. WELLBUTRIN [Concomitant]
  4. TOPAMAX [Concomitant]

REACTIONS (5)
  - ANAPHYLACTIC SHOCK [None]
  - DIARRHOEA [None]
  - HYPERSENSITIVITY [None]
  - NAUSEA [None]
  - VOMITING [None]
